FAERS Safety Report 16056709 (Version 1)
Quarter: 2019Q2

REPORT INFORMATION
  Report Type: Spontaneous
  Country: US (occurrence: US)
  Receive Date: 20190310
  Receipt Date: 20190310
  Transmission Date: 20190711
  Serious: No
  Sender: FDA-Public Use
  Company Number: None

PATIENT
  Age: 7 Year
  Sex: Female
  Weight: 24.75 kg

DRUGS (3)
  1. VITAMIN C [Concomitant]
     Active Substance: ASCORBIC ACID
  2. CHILDREN^S MULTIVITAMIN [Concomitant]
  3. OSELTAMIVIR 6MG/ML SUSPENSION; NDC: 70710-1165-06 [Suspect]
     Active Substance: OSELTAMIVIR PHOSPHATE
     Indication: INFLUENZA A VIRUS TEST
     Dosage: ?          QUANTITY:60 ML;?
     Route: 048
     Dates: start: 20190309, end: 20190310

REACTIONS (4)
  - Hallucination [None]
  - Crying [None]
  - Psychotic disorder [None]
  - Pain [None]

NARRATIVE: CASE EVENT DATE: 20190309
